FAERS Safety Report 6462247-2 (Version None)
Quarter: 2009Q4

REPORT INFORMATION
  Report Type: 
  Country: None (occurrence: None)
  Receive Date: 20091130
  Receipt Date: 20091026
  Transmission Date: 20100525
  Serious: No
  Sender: FDA-Public Use
  Company Number: US-BAYER-200937338NA

PATIENT
  Age: 38 Year
  Sex: Female

DRUGS (2)
  1. ULTRAVIST PHARMACY BULK PACKAGE [Suspect]
     Indication: COMPUTERISED TOMOGRAM ABDOMEN
     Dosage: 2 CC/SEC, POWER INJECTOR AND WARMER USED (37.5 C)
     Route: 042
  2. ORAL CONTAST [Concomitant]

REACTIONS (4)
  - ERYTHEMA [None]
  - HYPERSENSITIVITY [None]
  - PRURITUS [None]
  - URTICARIA [None]
